FAERS Safety Report 7454949-6 (Version None)
Quarter: 2011Q2

REPORT INFORMATION
  Report Type: 
  Country: None (occurrence: None)
  Receive Date: 20110503
  Receipt Date: 20110420
  Transmission Date: 20111010
  Serious: Yes (Other)
  Sender: FDA-Public Use
  Company Number: MY-SANOFI-AVENTIS-2011SA024405

PATIENT
  Age: 60 Year
  Sex: Male
  Weight: 74 kg

DRUGS (9)
  1. BLINDED THERAPY [Suspect]
     Route: 065
     Dates: start: 20110311, end: 20110409
  2. AMLODIPINE [Concomitant]
     Route: 048
  3. BLINDED THERAPY [Suspect]
     Route: 065
     Dates: start: 20110311, end: 20110409
  4. GLUCOPHAGE [Concomitant]
     Route: 048
  5. PYRAZINAMIDE [Suspect]
     Indication: PULMONARY TUBERCULOSIS
     Route: 065
     Dates: start: 20110311, end: 20110409
  6. DIAMICRON [Concomitant]
     Route: 048
  7. LOVASTATIN [Concomitant]
     Route: 048
  8. RIFAMPICIN [Suspect]
     Indication: PULMONARY TUBERCULOSIS
     Route: 065
     Dates: start: 20110311, end: 20110409
  9. BLINDED THERAPY [Suspect]
     Indication: PULMONARY TUBERCULOSIS
     Route: 065
     Dates: start: 20110311, end: 20110409

REACTIONS (3)
  - GOUTY ARTHRITIS [None]
  - PAIN [None]
  - JOINT SWELLING [None]
